FAERS Safety Report 8276154-6 (Version None)
Quarter: 2012Q2

REPORT INFORMATION
  Report Type: 
  Country: None (occurrence: None)
  Receive Date: 20120406
  Receipt Date: 20120321
  Transmission Date: 20120825
  Serious: Yes (Hospitalization)
  Sender: FDA-Public Use
  Company Number: DSA_55787_2012

PATIENT
  Sex: Female

DRUGS (3)
  1. ATIVAN [Suspect]
     Indication: PRODUCT USED FOR UNKNOWN INDICATION
     Dosage: (DF ORAL)
     Route: 048
  2. ALCOHOL [Suspect]
     Indication: PRODUCT USED FOR UNKNOWN INDICATION
     Dosage: (DF)
  3. (ALL OTHER THERAPEUTIC PRODUCTS) [Suspect]
     Indication: PRODUCT USED FOR UNKNOWN INDICATION
     Dosage: (DF)

REACTIONS (7)
  - AMNESIA [None]
  - IMPAIRED WORK ABILITY [None]
  - MENTAL DISORDER [None]
  - DRUG DIVERSION [None]
  - DRUG ABUSE [None]
  - ALCOHOL ABUSE [None]
  - CONTUSION [None]
